FAERS Safety Report 6659685-1 (Version None)
Quarter: 2010Q1

REPORT INFORMATION
  Report Type: 
  Country: None (occurrence: None)
  Receive Date: 20100330
  Receipt Date: 20100318
  Transmission Date: 20100710
  Serious: Yes (Other)
  Sender: FDA-Public Use
  Company Number: US-PFIZER INC-2010026865

PATIENT
  Sex: Female
  Weight: 68.027 kg

DRUGS (9)
  1. CHANTIX [Suspect]
     Indication: SMOKING CESSATION THERAPY
     Dosage: 0.5 MG, 1X/DAY
     Route: 048
     Dates: start: 20100131
  2. CHANTIX [Suspect]
     Dosage: 0.5 MG, DAILY
     Route: 048
     Dates: start: 20100201
  3. VICODIN [Concomitant]
     Dosage: 10/500
  4. ELAVIL [Concomitant]
     Indication: FIBROMYALGIA
     Dosage: 300 MG, 1X/DAY
  5. ELAVIL [Concomitant]
     Indication: DEPRESSION
  6. ELAVIL [Concomitant]
     Indication: SLEEP DISORDER
  7. XANAX [Concomitant]
     Indication: ANXIETY
     Dosage: FREQUENCY: 3X/DAY,
  8. METHOCARBAMOL [Concomitant]
     Dosage: FREQUENCY: 4X/DAY,
  9. ROBAXIN [Concomitant]
     Dosage: UNK

REACTIONS (2)
  - DEPRESSION [None]
  - NERVOUSNESS [None]
